FAERS Safety Report 9807410 (Version 1)
Quarter: 2014Q1

REPORT INFORMATION
  Report Type: Report from Study
  Country: IN (occurrence: IN)
  Receive Date: 20140110
  Receipt Date: 20140110
  Transmission Date: 20141002
  Serious: Yes (Death, Life-Threatening, Other)
  Sender: FDA-Public Use
  Company Number: IN-AMGEN-INDCT2014000960

PATIENT
  Age: 60 Year
  Sex: Male
  Weight: 49.9 kg

DRUGS (30)
  1. DARBEPOETIN ALFA [Suspect]
     Indication: ANAEMIA OF MALIGNANT DISEASE
     Dosage: UNK
     Route: 065
     Dates: start: 20130819, end: 20131021
  2. GEMCITABINE [Concomitant]
     Dosage: 1000 MG/M2, UNK
     Route: 042
     Dates: start: 20130819, end: 20131021
  3. CISPLATIN [Concomitant]
     Dosage: 70 MG/M2, UNK
     Route: 042
     Dates: start: 20130819, end: 20131011
  4. AZITHROMYCIN [Concomitant]
     Indication: LOWER RESPIRATORY TRACT INFECTION
     Dosage: 500 MG, UNK
     Dates: start: 20130910, end: 20130913
  5. GRANISET [Concomitant]
     Indication: PREMEDICATION
     Dosage: 6 MG, UNK
     Dates: start: 20130819
  6. NORMAL SALINE [Concomitant]
     Indication: FATIGUE
     Dosage: 500 ML, UNK
     Dates: start: 20130910, end: 20130913
  7. DEXTROSE [Concomitant]
     Indication: FATIGUE
     Dosage: 500 ML, UNK
     Dates: start: 20130910, end: 20130913
  8. MULTIVITAMINS, PLAIN [Concomitant]
     Indication: FATIGUE
     Dosage: UNK
     Dates: start: 20130910, end: 20130913
  9. RABEPRAZOLE [Concomitant]
     Indication: PROPHYLAXIS
     Dosage: 20 MG, UNK
     Dates: start: 20130910, end: 20130913
  10. COREX                              /00589201/ [Concomitant]
     Indication: COUGH
     Dosage: 2 UNK, UNK
     Dates: start: 20130910, end: 20130913
  11. AMOXYCILLIN                        /00249601/ [Concomitant]
     Indication: LOWER RESPIRATORY TRACT INFECTION
     Dosage: 500 MG, UNK
     Dates: start: 20130826, end: 20130828
  12. DERIPHYLLIN [Concomitant]
     Indication: LOWER RESPIRATORY TRACT INFECTION
     Dosage: 150 MG, UNK
     Dates: start: 20130826, end: 20130830
  13. MUCODYNE [Concomitant]
     Indication: COUGH
     Dosage: 2 UNK, UNK
     Dates: start: 20130826, end: 20130830
  14. TRIOHALE [Concomitant]
     Indication: DYSPNOEA
     Dosage: 2 UNK, UNK
     Dates: start: 20130826
  15. LEVOSALBUTAMOL [Concomitant]
     Indication: DYSPNOEA
     Dosage: 2.5 MG, UNK
     Dates: start: 20130910, end: 20130913
  16. MANNITOL [Concomitant]
     Indication: RENAL IMPAIRMENT
     Dosage: 200 MG, UNK
     Dates: start: 20130819
  17. BUDECORT [Concomitant]
     Indication: PROPHYLAXIS
     Dosage: 0.5 MG, UNK
     Dates: start: 20130910, end: 20130913
  18. IPRATROPIUM [Concomitant]
     Indication: DYSPNOEA
     Dosage: 500 MUG, UNK
     Dates: start: 20130910, end: 20130913
  19. TRAMADOL [Concomitant]
     Indication: PAIN
     Dosage: 100 MG, UNK
     Dates: start: 20130911, end: 20130911
  20. TRAMADOL [Concomitant]
     Indication: CHEST PAIN
  21. FORCAN [Concomitant]
     Indication: INFECTION
     Dosage: 20-150 MG, UNK
     Dates: start: 20130912, end: 20130917
  22. PAN [Concomitant]
     Indication: HYPERCHLORHYDRIA
     Dosage: 40 MG, UNK
     Dates: start: 20130913, end: 20130917
  23. ATIVAN [Concomitant]
     Indication: ANXIETY
     Dosage: 1 MG, UNK
     Dates: start: 20130819
  24. PERINORM [Concomitant]
     Indication: NAUSEA
     Dosage: 10 MG, UNK
     Dates: start: 20130819
  25. PERINORM [Concomitant]
     Indication: VOMITING
  26. OMEZ D [Concomitant]
     Indication: NAUSEA
     Dosage: 1 UNK, UNK
     Dates: start: 20130819
  27. OMEZ D [Concomitant]
     Indication: VOMITING
  28. TANTUM                             /00052302/ [Concomitant]
     Indication: STOMATITIS
     Dosage: 10 ML, UNK
     Dates: start: 20130819
  29. KCL [Concomitant]
     Indication: ELECTROLYTE IMBALANCE
     Dosage: 1 G, UNK
     Route: 042
     Dates: start: 20130819
  30. PIPERACILLIN/TAZOBACTAM [Concomitant]
     Indication: LOWER RESPIRATORY TRACT INFECTION
     Dosage: 4.5 G, UNK
     Dates: start: 20130910, end: 20130913

REACTIONS (1)
  - Pulmonary embolism [Fatal]
